FAERS Safety Report 8035101-2 (Version None)
Quarter: 2012Q1

REPORT INFORMATION
  Report Type: 
  Country: None (occurrence: None)
  Receive Date: 20120111
  Receipt Date: 20120105
  Transmission Date: 20120608
  Serious: Yes (Hospitalization, Other)
  Sender: FDA-Public Use
  Company Number: US-BIOGENIDEC-2011BI011114

PATIENT
  Age: 37 Year
  Sex: Female

DRUGS (2)
  1. TYSABRI [Suspect]
     Indication: MULTIPLE SCLEROSIS
     Route: 042
     Dates: start: 20081029
  2. FLEXERIL [Concomitant]
     Indication: MUSCLE SPASMS

REACTIONS (9)
  - VICTIM OF ABUSE [None]
  - ASTHENIA [None]
  - MUSCLE SPASMS [None]
  - STRESS [None]
  - SOMNOLENCE [None]
  - POST-TRAUMATIC EPILEPSY [None]
  - HERPES ZOSTER [None]
  - POST-TRAUMATIC STRESS DISORDER [None]
  - ANXIETY [None]
